FAERS Safety Report 9921154 (Version 1)
Quarter: 2014Q1

REPORT INFORMATION
  Report Type: Spontaneous
  Country: US (occurrence: None)
  Receive Date: 20140221
  Receipt Date: 20140221
  Transmission Date: 20141002
  Serious: Yes (Death)
  Sender: FDA-Public Use
  Company Number: None

PATIENT
  Age: 93 Year
  Sex: Male
  Weight: 63.6 kg

DRUGS (1)
  1. THALOMID [Suspect]
     Indication: PLASMA CELL MYELOMA
     Dates: start: 20120515, end: 20140212

REACTIONS (1)
  - Death [None]
